FAERS Safety Report 18879405 (Version 2)
Quarter: 2021Q2

REPORT INFORMATION
  Report Type: Other
  Country: CO (occurrence: CO)
  Receive Date: 20210211
  Receipt Date: 20210607
  Transmission Date: 20210717
  Serious: Yes (Hospitalization)
  Sender: FDA-Public Use
  Company Number: CO-ROCHE-2767081

PATIENT
  Age: 36 Year
  Sex: Female

DRUGS (4)
  1. XOLAIR [Suspect]
     Active Substance: OMALIZUMAB
     Route: 058
  2. XOLAIR [Suspect]
     Active Substance: OMALIZUMAB
     Indication: IDIOPATHIC URTICARIA
     Route: 058
     Dates: start: 20180524
  3. XOLAIR [Suspect]
     Active Substance: OMALIZUMAB
     Indication: CHRONIC SPONTANEOUS URTICARIA
     Route: 058
     Dates: start: 20180509
  4. ESOMEPRAZOLE. [Suspect]
     Active Substance: ESOMEPRAZOLE MAGNESIUM
     Indication: GASTRITIS
     Dosage: 3 MONTHS AGO
     Route: 048

REACTIONS (19)
  - Head injury [Unknown]
  - Discomfort [Not Recovered/Not Resolved]
  - Discouragement [Not Recovered/Not Resolved]
  - Migraine [Not Recovered/Not Resolved]
  - Nausea [Not Recovered/Not Resolved]
  - Syncope [Unknown]
  - Musculoskeletal chest pain [Not Recovered/Not Resolved]
  - Ill-defined disorder [Unknown]
  - Chest injury [Unknown]
  - Bone pain [Not Recovered/Not Resolved]
  - Rash [Not Recovered/Not Resolved]
  - Headache [Unknown]
  - Head discomfort [Not Recovered/Not Resolved]
  - Loss of consciousness [Unknown]
  - Pruritus [Not Recovered/Not Resolved]
  - Asthenia [Not Recovered/Not Resolved]
  - Hypersensitivity [Unknown]
  - Dizziness [Not Recovered/Not Resolved]
  - Fall [Unknown]

NARRATIVE: CASE EVENT DATE: 20180524
